FAERS Safety Report 13835191 (Version 1)
Quarter: 2017Q3

REPORT INFORMATION
  Report Type: Spontaneous
  Country: GB (occurrence: GB)
  Receive Date: 20170804
  Receipt Date: 20170804
  Transmission Date: 20171127
  Serious: Yes (Other)
  Sender: FDA-Public Use
  Company Number: GB-ACCORD-056633

PATIENT
  Age: 30 Year
  Sex: Female
  Weight: 75 kg

DRUGS (12)
  1. FEXOFENADINE/FEXOFENADINE HYDROCHLORIDE [Concomitant]
     Dates: start: 20170419, end: 20170519
  2. MOMETASONE [Concomitant]
     Active Substance: MOMETASONE
     Dates: start: 20170503, end: 20170531
  3. CROTAMITON [Concomitant]
     Active Substance: CROTAMITON
     Dates: start: 20170421, end: 20170505
  4. SERTRALINE [Suspect]
     Active Substance: SERTRALINE HYDROCHLORIDE
     Indication: PRODUCT USED FOR UNKNOWN INDICATION
     Dates: start: 20170502
  5. LEVOFLOXACIN/LEVOFLOXACIN MESYLATE [Concomitant]
     Dosage: FOR THE FIRST 48 HOURS AND THE...
     Dates: start: 20170528, end: 20170604
  6. DIETHANOLAMINE FUSIDATE/FUSIDATE SODIUM/FUSIDIC ACID [Concomitant]
     Dates: start: 20170522, end: 20170529
  7. CETIRIZINE [Concomitant]
     Active Substance: CETIRIZINE HYDROCHLORIDE
     Dates: start: 20170522, end: 20170621
  8. CORSODYL [Concomitant]
     Active Substance: CHLORHEXIDINE GLUCONATE
     Dates: start: 20170419, end: 20170429
  9. HYDROCORTISONE. [Concomitant]
     Active Substance: HYDROCORTISONE
     Dosage: SUCK 4 TIMES/DAY.
     Dates: start: 20170419, end: 20170424
  10. PREDNISOLONE. [Concomitant]
     Active Substance: PREDNISOLONE
     Dosage: TAKE 6 A DAY (30MG) FOR 7 DAYS THEN 4 A DAY (20...
     Dates: start: 20170421, end: 20170519
  11. ACICLOVIR [Concomitant]
     Active Substance: ACYCLOVIR
     Dates: start: 20170519
  12. SYNALAR [Concomitant]
     Active Substance: FLUOCINOLONE ACETONIDE
     Dates: start: 20170522, end: 20170529

REACTIONS (1)
  - Erythema multiforme [Recovered/Resolved]

NARRATIVE: CASE EVENT DATE: 20170606
